FAERS Safety Report 7006402-1 (Version None)
Quarter: 2010Q3

REPORT INFORMATION
  Report Type: 
  Country: None (occurrence: None)
  Receive Date: 20100909
  Receipt Date: 20100831
  Transmission Date: 20110219
  Serious: Yes (Other)
  Sender: FDA-Public Use
  Company Number: 2010SP046583

PATIENT
  Age: 56 Year
  Sex: Female

DRUGS (2)
  1. PEG-INTRON [Suspect]
     Indication: PRODUCT USED FOR UNKNOWN INDICATION
  2. REBETOL [Suspect]
     Indication: PRODUCT USED FOR UNKNOWN INDICATION

REACTIONS (6)
  - CEREBRAL INFARCTION [None]
  - GASTROINTESTINAL HAEMORRHAGE [None]
  - RAYNAUD'S PHENOMENON [None]
  - RENAL FAILURE [None]
  - RESPIRATORY FAILURE [None]
  - THROMBOCYTOPENIA [None]
